FAERS Safety Report 9789725 (Version 1)
Quarter: 2013Q4

REPORT INFORMATION
  Report Type: Spontaneous
  Country: US (occurrence: None)
  Receive Date: 20131227
  Receipt Date: 20131227
  Transmission Date: 20140711
  Serious: Yes (Other)
  Sender: FDA-Public Use
  Company Number: 2013-00163

PATIENT
  Age: 58 Year
  Sex: Female

DRUGS (3)
  1. ZICAM [Suspect]
     Indication: NASOPHARYNGITIS
     Dates: start: 20131218
  2. ZICAM [Suspect]
     Indication: INFLUENZA
     Dates: start: 20131218
  3. SYNTHROID [Concomitant]

REACTIONS (4)
  - Urticaria [None]
  - Local swelling [None]
  - Pruritus [None]
  - Anaphylactic reaction [None]
